FAERS Safety Report 9276752 (Version 3)
Quarter: 2013Q2

REPORT INFORMATION
  Report Type: Report from Study
  Country: US (occurrence: US)
  Receive Date: 20130507
  Receipt Date: 20130531
  Transmission Date: 20140414
  Serious: Yes (Hospitalization)
  Sender: FDA-Public Use
  Company Number: US-ACTELION-A-US2013-82640

PATIENT
  Age: 66 Year
  Sex: Female

DRUGS (4)
  1. TRACLEER [Suspect]
     Indication: PULMONARY ARTERIAL HYPERTENSION
     Dosage: UNK
     Route: 048
     Dates: end: 20130520
  2. SILDENAFIL [Concomitant]
  3. COUMADIN [Concomitant]
  4. REMODULIN [Concomitant]
     Dosage: UNK
     Dates: end: 20130520

REACTIONS (3)
  - Colon cancer [Unknown]
  - Gastrointestinal haemorrhage [Unknown]
  - Hospice care [Unknown]
